FAERS Safety Report 4607427-3 (Version None)
Quarter: 2005Q1

REPORT INFORMATION
  Report Type: 
  Country: None (occurrence: None)
  Receive Date: 20050309
  Receipt Date: 20050225
  Transmission Date: 20050727
  Serious: Yes (Hospitalization)
  Sender: FDA-Public Use
  Company Number: SP-2005-002087

PATIENT
  Age: 54 Year
  Sex: Male

DRUGS (1)
  1. ALTEIS [Suspect]
     Indication: ESSENTIAL HYPERTENSION
     Dosage: 10 MG QD PO
     Route: 048
     Dates: start: 20041101, end: 20050121

REACTIONS (4)
  - AMNESIA [None]
  - INSOMNIA [None]
  - MALAISE [None]
  - ROAD TRAFFIC ACCIDENT [None]
